FAERS Safety Report 4676737-6 (Version None)
Quarter: 2005Q2

REPORT INFORMATION
  Report Type: 
  Country: None (occurrence: None)
  Receive Date: 20050527
  Receipt Date: 20050520
  Transmission Date: 20051028
  Serious: Yes (Life-Threatening, Hospitalization)
  Sender: FDA-Public Use
  Company Number: 2003174557US

PATIENT
  Age: 47 Year
  Sex: Female
  Weight: 90 kg

DRUGS (2)
  1. ELLENCE [Suspect]
     Indication: BREAST CANCER
     Dosage: 75 MG/M2 (75 MG/M2, CYCLIC, EVERY 21 DAYS), INTRAVENOUS
     Route: 042
     Dates: start: 20020412, end: 20020926
  2. DOCETAXEL (DOCETAXEL) [Suspect]
     Indication: BREAST CANCER
     Dosage: 75 MG/M2 (75 MG/M2, CYCLIC, EVERY 21 DAYS), INTRAVENOUS
     Route: 042
     Dates: start: 20020412, end: 20020926

REACTIONS (5)
  - CARDIAC FAILURE CONGESTIVE [None]
  - CARDIOMYOPATHY [None]
  - ELECTROCARDIOGRAM Q WAVE ABNORMAL [None]
  - HYPERTENSION [None]
  - PO2 DECREASED [None]
